FAERS Safety Report 6640924-8 (Version None)
Quarter: 2010Q1

REPORT INFORMATION
  Report Type: 
  Country: None (occurrence: None)
  Receive Date: 20100318
  Receipt Date: 20100315
  Transmission Date: 20100710
  Serious: Yes (Hospitalization)
  Sender: FDA-Public Use
  Company Number: FR-KINGPHARMUSA00001-K201000306

PATIENT
  Age: 70 Year
  Sex: Male

DRUGS (8)
  1. ALTACE [Suspect]
     Indication: HYPERTENSION
     Dosage: 5 MG, QD
     Route: 048
     Dates: end: 20090929
  2. HYDROCHLOROTHIAZIDE [Suspect]
     Indication: HYPERTENSION
     Dosage: 12.5 MG, QD
     Route: 048
     Dates: end: 20090929
  3. LIPANTHYL [Suspect]
     Indication: DYSLIPIDAEMIA
     Dosage: 145 MG, QD
     Route: 048
     Dates: end: 19920929
  4. NEXIUM [Concomitant]
     Dosage: 40 MG, QD
     Dates: start: 20090414, end: 20090929
  5. NICOBION [Concomitant]
     Indication: CIRRHOSIS ALCOHOLIC
     Dosage: UNK
     Route: 048
     Dates: start: 20080101
  6. DIFFU K [Concomitant]
     Indication: HYPOKALAEMIA
     Dosage: 600 MG, QD
     Route: 048
  7. VITAMIN B1 AND B6 [Concomitant]
     Indication: HYPOVITAMINOSIS
     Dosage: 1 DF, UNK
     Route: 048
  8. TADENAN [Concomitant]
     Indication: PROSTATIC ADENOMA
     Dosage: 100 MG, QD
     Route: 048

REACTIONS (6)
  - ANAEMIA [None]
  - BLOOD BILIRUBIN INCREASED [None]
  - CONFUSIONAL STATE [None]
  - FALL [None]
  - HAEMOLYSIS [None]
  - HAEMOLYTIC ANAEMIA [None]
